FAERS Safety Report 19976954 (Version 1)
Quarter: 2021Q4

REPORT INFORMATION
  Report Type: Report from Study
  Country: None (occurrence: GR)
  Receive Date: 20211021
  Receipt Date: 20211021
  Transmission Date: 20220303
  Serious: Yes (Hospitalization, Other)
  Sender: FDA-Public Use
  Company Number: GR-ABBVIE-21K-066-4129016-00

PATIENT

DRUGS (4)
  1. VENETOCLAX [Suspect]
     Active Substance: VENETOCLAX
     Indication: Acute myeloid leukaemia
     Route: 048
     Dates: start: 202107, end: 2021
  2. VENETOCLAX [Suspect]
     Active Substance: VENETOCLAX
     Route: 048
     Dates: start: 2021
  3. CYTARABINE [Concomitant]
     Active Substance: CYTARABINE
     Indication: Acute myeloid leukaemia
     Dosage: LOW DOSE
     Dates: start: 202107
  4. POSACONAZOLE [Concomitant]
     Active Substance: POSACONAZOLE
     Indication: Product used for unknown indication

REACTIONS (5)
  - Platelet transfusion [Unknown]
  - Transfusion [Unknown]
  - Hospitalisation [Unknown]
  - Therapeutic product effect incomplete [Unknown]
  - Off label use [Unknown]

NARRATIVE: CASE EVENT DATE: 20210101
